FAERS Safety Report 6441117-X (Version None)
Quarter: 2009Q4

REPORT INFORMATION
  Report Type: 
  Country: None (occurrence: None)
  Receive Date: 20091113
  Receipt Date: 20091113
  Transmission Date: 20100525
  Serious: Yes (Other)
  Sender: FDA-Public Use
  Company Number: None

PATIENT
  Age: 39 Year
  Sex: Female
  Weight: 102.0593 kg

DRUGS (5)
  1. VYVANSE [Suspect]
     Indication: IRRITABILITY
     Dosage: 1 CAPSULE DAILY PO
     Route: 048
     Dates: start: 20091018, end: 20091024
  2. LEXAPRO [Concomitant]
  3. WELLBUTRIN [Concomitant]
  4. NALTREXONE HYDROCHLORIDE [Concomitant]
  5. TRAZODONE HCL [Concomitant]

REACTIONS (6)
  - CRYING [None]
  - LIP SWELLING [None]
  - MEMORY IMPAIRMENT [None]
  - OEDEMA MOUTH [None]
  - SWOLLEN TONGUE [None]
  - TONGUE HAEMORRHAGE [None]
